FAERS Safety Report 7211397-1 (Version None)
Quarter: 2011Q1

REPORT INFORMATION
  Report Type: 
  Country: None (occurrence: None)
  Receive Date: 20110105
  Receipt Date: 20101229
  Transmission Date: 20110831
  Serious: Yes (Hospitalization)
  Sender: FDA-Public Use
  Company Number: US-B.I. PHARMACEUTICALS,INC./RIDGEFIELD-2010-BP-12823BP

PATIENT
  Sex: Female

DRUGS (9)
  1. PRADAXA [Suspect]
     Indication: ATRIAL FIBRILLATION
  2. POTASSIUM CHLORIDE [Concomitant]
     Dosage: 20 MEQ
  3. LOVASTATIN [Concomitant]
     Dosage: 40 MG
  4. AMIODARONE [Concomitant]
     Dosage: 400 MG
  5. ZETIA [Concomitant]
     Dosage: 10 MG
  6. WARFARIN [Concomitant]
     Dosage: 1.5 MG
  7. PRADAXA [Suspect]
     Indication: CEREBROVASCULAR ACCIDENT PROPHYLAXIS
     Dosage: 300 MG
     Route: 048
     Dates: start: 20101114, end: 20101118
  8. FUROSEMIDE [Concomitant]
     Dosage: 80 MG
  9. DILTIAZEM [Concomitant]
     Dosage: 240 MG

REACTIONS (4)
  - DYSPEPSIA [None]
  - HEADACHE [None]
  - VOMITING [None]
  - CHEST PAIN [None]
